FAERS Safety Report 17991951 (Version 1)
Quarter: 2020Q3

REPORT INFORMATION
  Report Type: Spontaneous
  Country: GB (occurrence: GB)
  Receive Date: 20200707
  Receipt Date: 20200707
  Transmission Date: 20201103
  Serious: Yes (Life-Threatening, Other)
  Sender: FDA-Public Use
  Company Number: NVSC2020GB190733

PATIENT
  Age: 41 Year
  Sex: Male
  Weight: 75 kg

DRUGS (2)
  1. LIDOCAINE. [Suspect]
     Active Substance: LIDOCAINE
     Indication: PRODUCT USED FOR UNKNOWN INDICATION
     Dosage: 6.6 ML
     Route: 051
     Dates: start: 20190307
  2. AMOXICILLIN. [Suspect]
     Active Substance: AMOXICILLIN
     Indication: PROPHYLAXIS
     Dosage: 1500 MG, QD, FOR 7 DAYS, TABLET
     Route: 048
     Dates: start: 20190307

REACTIONS (2)
  - Suicidal ideation [Recovered/Resolved]
  - Panic attack [Recovered/Resolved]

NARRATIVE: CASE EVENT DATE: 201903
